FAERS Safety Report 13930349 (Version 1)
Quarter: 2017Q3

REPORT INFORMATION
  Report Type: Spontaneous
  Country: MX (occurrence: MX)
  Receive Date: 20170901
  Receipt Date: 20170901
  Transmission Date: 20171127
  Serious: Yes (Death, Hospitalization, Other)
  Sender: FDA-Public Use
  Company Number: MX-TEVA-800916ISR

PATIENT
  Age: 86 Year
  Sex: Male
  Weight: 76 kg

DRUGS (3)
  1. BIPERIDEN [Concomitant]
     Active Substance: BIPERIDEN
     Route: 048
  2. LEVODOPA [Concomitant]
     Active Substance: LEVODOPA
     Route: 048
  3. AZILECT [Suspect]
     Active Substance: RASAGILINE MESYLATE
     Indication: PARKINSON^S DISEASE
     Dosage: 1 MILLIGRAM DAILY;
     Route: 048
     Dates: end: 201706

REACTIONS (3)
  - Senile dementia [Unknown]
  - Hallucination [Unknown]
  - Thrombosis [Fatal]

NARRATIVE: CASE EVENT DATE: 201706
